FAERS Safety Report 12369087 (Version 5)
Quarter: 2016Q3

REPORT INFORMATION
  Report Type: Spontaneous
  Country: ES (occurrence: ES)
  Receive Date: 20160513
  Receipt Date: 20160708
  Transmission Date: 20161109
  Serious: Yes (Other)
  Sender: FDA-Public Use
  Company Number: ES-009507513-1604ESP017952

PATIENT
  Age: 75 Year
  Sex: Male
  Weight: 85 kg

DRUGS (1)
  1. SINEMET PLUS 25/100 MG (IR) [Suspect]
     Active Substance: CARBIDOPA\LEVODOPA
     Indication: PARKINSON^S DISEASE
     Dosage: 7.5 TABLETS, QD (2.5 TABLETS IN THE MORNING AND THROUGHOUT THE DAY 2, 2, 1 TABLETS)
     Route: 048
     Dates: start: 20060322

REACTIONS (5)
  - Dental caries [Not Recovered/Not Resolved]
  - Wrong technique in product usage process [Unknown]
  - Parkinson^s disease [Unknown]
  - Depression [Not Recovered/Not Resolved]
  - Tooth disorder [Not Recovered/Not Resolved]

NARRATIVE: CASE EVENT DATE: 201006
